FAERS Safety Report 19907582 (Version 1)
Quarter: 2021Q4

REPORT INFORMATION
  Report Type: Spontaneous
  Country: CA (occurrence: CA)
  Receive Date: 20211001
  Receipt Date: 20211001
  Transmission Date: 20220303
  Serious: Yes (Other)
  Sender: FDA-Public Use
  Company Number: CA-TEVA-2021-CA-1959518

PATIENT
  Age: 23 Year
  Sex: Female
  Weight: 63 kg

DRUGS (3)
  1. LEVETIRACETAM [Suspect]
     Active Substance: LEVETIRACETAM
     Indication: Epilepsy
     Dosage: 1000 MILLIGRAM DAILY;
     Route: 048
  2. APPRILON MODIFIED RELEASE CAPSULE [Concomitant]
  3. YAZ PLUS PINK TAB CONTAINS DROSPIRENONE, ETHINYL ESTRADIOL AND LEVOMEF [Concomitant]

REACTIONS (1)
  - Intentional self-injury [Unknown]
